FAERS Safety Report 5178930-5 (Version None)
Quarter: 2006Q4

REPORT INFORMATION
  Report Type: 
  Country: None (occurrence: None)
  Receive Date: 20061213
  Receipt Date: 20061213
  Transmission Date: 20070319
  Serious: No
  Sender: FDA-Public Use
  Company Number: None

PATIENT
  Sex: Female
  Weight: 61 kg

DRUGS (7)
  1. DILAUDID [Suspect]
     Indication: PAIN
     Dosage: 1MG  PRN  IV BOLUS
     Route: 040
     Dates: start: 20061210, end: 20061211
  2. BACLOFEN [Concomitant]
  3. HYDROCHLOROTHIAZIDE [Concomitant]
  4. LISINOPRIL [Concomitant]
  5. NEXIUM [Concomitant]
  6. LOVENOX [Concomitant]
  7. SYNTHROID [Concomitant]

REACTIONS (1)
  - RASH [None]
